FAERS Safety Report 18076489 (Version 1)
Quarter: 2020Q3

REPORT INFORMATION
  Report Type: Spontaneous
  Country: US (occurrence: US)
  Receive Date: 20200728
  Receipt Date: 20200728
  Transmission Date: 20201103
  Serious: No
  Sender: FDA-Public Use
  Company Number: US-SA-2020SA190274

PATIENT

DRUGS (13)
  1. TOPIRAMATE. [Concomitant]
     Active Substance: TOPIRAMATE
  2. METFORMIN [Concomitant]
     Active Substance: METFORMIN HYDROCHLORIDE
  3. NORVASC [Concomitant]
     Active Substance: AMLODIPINE BESYLATE
  4. LOSARTAN. [Concomitant]
     Active Substance: LOSARTAN
  5. BYDUREON [Concomitant]
     Active Substance: EXENATIDE
  6. MULTIVITAMINUM [Concomitant]
     Active Substance: VITAMINS
  7. TRADJENTA [Concomitant]
     Active Substance: LINAGLIPTIN
  8. IBUPROFEN. [Concomitant]
     Active Substance: IBUPROFEN
  9. DUPIXENT [Suspect]
     Active Substance: DUPILUMAB
     Indication: DERMATITIS ATOPIC
     Dosage: 300 MG, QOW
     Route: 058
     Dates: start: 202005
  10. METOPROLOL. [Concomitant]
     Active Substance: METOPROLOL
  11. HYDROCHLOROTHIAZIDE. [Concomitant]
     Active Substance: HYDROCHLOROTHIAZIDE
  12. ATORVASTATIN [Concomitant]
     Active Substance: ATORVASTATIN
  13. TRESIBA [Concomitant]
     Active Substance: INSULIN DEGLUDEC

REACTIONS (2)
  - Pruritus [Unknown]
  - Skin fissures [Unknown]

NARRATIVE: CASE EVENT DATE: 202007
